FAERS Safety Report 4999114-7 (Version None)
Quarter: 2006Q1

REPORT INFORMATION
  Report Type: 
  Country: None (occurrence: None)
  Receive Date: 20060315
  Receipt Date: 20051129
  Transmission Date: 20060701
  Serious: Yes (Other)
  Sender: FDA-Public Use
  Company Number: 417919

PATIENT
  Age: 53 Year
  Sex: Female
  Weight: 59 kg

DRUGS (6)
  1. BONIVA [Suspect]
     Indication: OSTEOPOROSIS
     Dosage: 150 MG 1 PER MONTH ORAL
     Route: 048
     Dates: start: 20050812, end: 20050812
  2. PERCOCET (OXYCODONE/PARACETAMOL) [Concomitant]
  3. ZYDONE (HYDROCODONE BITARTRATE/PARACETAMOL) [Concomitant]
  4. NORMODYNE [Concomitant]
  5. CALCIUM SUPPLEMENT (CALCIUM) [Concomitant]
  6. HYDROCHLOROTHIAZIDE [Concomitant]

REACTIONS (9)
  - ARTHRALGIA [None]
  - BONE PAIN [None]
  - CONFUSIONAL STATE [None]
  - CONTUSION [None]
  - HYPERSENSITIVITY [None]
  - OEDEMA [None]
  - RASH MACULAR [None]
  - SKIN EXFOLIATION [None]
  - SKIN IRRITATION [None]
